FAERS Safety Report 4289113-5 (Version None)
Quarter: 2004Q1

REPORT INFORMATION
  Report Type: 
  Country: None (occurrence: None)
  Receive Date: 20040209
  Receipt Date: 20040209
  Transmission Date: 20041129
  Serious: Yes (Death)
  Sender: FDA-Public Use
  Company Number: None

PATIENT
  Age: 95 Year
  Sex: Male
  Weight: 64.8644 kg

DRUGS (10)
  1. ZYPREXA [Suspect]
     Indication: AGITATION
     Dosage: 5-10 MG BID/PRN ORAL
     Route: 048
     Dates: start: 20040124, end: 20040126
  2. LORAZEPAM [Concomitant]
  3. LEVOFLOXACIN [Concomitant]
  4. ASPIRIN [Concomitant]
  5. DIPHENHYDRAMINE HCL [Concomitant]
  6. BENZTROPINE MESYLATE [Concomitant]
  7. VANCYCLOVIR [Concomitant]
  8. PREDNISONE [Concomitant]
  9. CEFTRIAXONE [Concomitant]
  10. PREVACID [Concomitant]

REACTIONS (2)
  - EXTRAPYRAMIDAL DISORDER [None]
  - NEUROLEPTIC MALIGNANT SYNDROME [None]
